FAERS Safety Report 5072860-5 (Version None)
Quarter: 2006Q3

REPORT INFORMATION
  Report Type: 
  Country: None (occurrence: None)
  Receive Date: 20060802
  Receipt Date: 20060727
  Transmission Date: 20061208
  Serious: Yes (Life-Threatening)
  Sender: FDA-Public Use
  Company Number: 2006-145972-NL

PATIENT
  Sex: Female

DRUGS (9)
  1. MIRTAZAPINE [Suspect]
     Indication: DEPRESSION
     Dosage: 45 MG ORAL
     Route: 048
     Dates: start: 20060515, end: 20060528
  2. LITHIUM [Suspect]
     Indication: DEPRESSION
     Dosage: 200 MG ORAL
     Route: 048
     Dates: start: 20060526, end: 20060528
  3. SERTRALINE [Suspect]
     Indication: DEPRESSION
     Dosage: 150 MG ORAL
     Route: 048
     Dates: start: 20050515, end: 20060528
  4. FELODIPINE [Concomitant]
  5. FUROSEMIDE [Concomitant]
  6. LITHIUM CARBONATE [Concomitant]
  7. LOSARTAN POSTASSIUM [Concomitant]
  8. MELOXICAM [Concomitant]
  9. NEFOPAM [Concomitant]

REACTIONS (1)
  - SEROTONIN SYNDROME [None]
